FAERS Safety Report 11753724 (Version 3)
Quarter: 2016Q1

REPORT INFORMATION
  Report Type: Spontaneous
  Country: DE (occurrence: DE)
  Receive Date: 20151119
  Receipt Date: 20160125
  Transmission Date: 20160525
  Serious: Yes (Hospitalization, Other)
  Sender: FDA-Public Use
  Company Number: DE-ALEXION PHARMACEUTICALS INC-A201504498

PATIENT
  Age: 31 Year
  Sex: Female

DRUGS (2)
  1. SOLIRIS [Suspect]
     Active Substance: ECULIZUMAB
     Dosage: 1200 MG, Q2W
     Route: 042
     Dates: start: 201405
  2. SOLIRIS [Suspect]
     Active Substance: ECULIZUMAB
     Indication: HAEMOLYTIC URAEMIC SYNDROME
     Dosage: UNK
     Route: 042
     Dates: start: 201402, end: 2014

REACTIONS (4)
  - Renal failure [Recovered/Resolved]
  - Haemolysis [Recovered/Resolved]
  - Thrombocytopenia [Recovered/Resolved]
  - Fibroadenoma of breast [Unknown]

NARRATIVE: CASE EVENT DATE: 20141029
